FAERS Safety Report 12607797 (Version 2)
Quarter: 2017Q1

REPORT INFORMATION
  Report Type: Spontaneous
  Country: US (occurrence: US)
  Receive Date: 20160729
  Receipt Date: 20170228
  Transmission Date: 20170428
  Serious: Yes (Other)
  Sender: FDA-Public Use
  Company Number: US-LPDUSPRD-20160642

PATIENT

DRUGS (1)
  1. IBUTILIDE FUMARATE INJECTION (0840-01) [Suspect]
     Active Substance: IBUTILIDE FUMARATE
     Dosage: DOSE UNKNOWN
     Route: 042

REACTIONS (1)
  - Ventricular tachycardia [Unknown]
